FAERS Safety Report 25239107 (Version 1)
Quarter: 2025Q2

REPORT INFORMATION
  Report Type: Spontaneous
  Country: US (occurrence: US)
  Receive Date: 20250425
  Receipt Date: 20250425
  Transmission Date: 20250717
  Serious: Yes (Hospitalization, Other)
  Sender: UCB
  Company Number: US-UCBSA-2025012876

PATIENT
  Sex: Female
  Weight: 50.43 kg

DRUGS (4)
  1. KEPPRA [Suspect]
     Active Substance: LEVETIRACETAM
     Indication: Epilepsy
  2. KEPPRA [Suspect]
     Active Substance: LEVETIRACETAM
     Dates: start: 202412
  3. TUKYSA [Suspect]
     Active Substance: TUCATINIB
     Indication: Breast cancer female
     Route: 048
     Dates: start: 2023
  4. TUKYSA [Suspect]
     Active Substance: TUCATINIB
     Dosage: 300 MILLIGRAM, 2X/DAY (BID), (150 MG, 2 TABLETS TWICE DAILY)
     Route: 048
     Dates: start: 20250129

REACTIONS (7)
  - Fatigue [Unknown]
  - Central nervous system lesion [Not Recovered/Not Resolved]
  - Nasopharyngitis [Recovering/Resolving]
  - Asthenia [Not Recovered/Not Resolved]
  - Gait disturbance [Unknown]
  - Gastrointestinal disorder [Unknown]
  - Somnolence [Not Recovered/Not Resolved]

NARRATIVE: CASE EVENT DATE: 20241201
